FAERS Safety Report 12489727 (Version 1)
Quarter: 2016Q2

REPORT INFORMATION
  Report Type: Spontaneous
  Country: DE (occurrence: DE)
  Receive Date: 20160622
  Receipt Date: 20160622
  Transmission Date: 20160815
  Serious: Yes (Death, Congenital Anomaly)
  Sender: FDA-Public Use
  Company Number: DE-TEVA-668125GER

PATIENT
  Age: 0 Year
  Sex: Male
  Weight: .26 kg

DRUGS (5)
  1. CLEXANE [Concomitant]
     Active Substance: ENOXAPARIN SODIUM
     Indication: SYSTEMIC LUPUS ERYTHEMATOSUS
     Route: 064
  2. VALSARTAN. [Suspect]
     Active Substance: VALSARTAN
     Indication: SYSTEMIC LUPUS ERYTHEMATOSUS
     Route: 064
  3. PREDNISOLON [Concomitant]
     Active Substance: PREDNISOLONE
     Indication: SYSTEMIC LUPUS ERYTHEMATOSUS
     Dosage: 5 MILLIGRAM DAILY;
     Route: 064
  4. ASPIRIN. [Concomitant]
     Active Substance: ASPIRIN
     Indication: SYSTEMIC LUPUS ERYTHEMATOSUS
     Dosage: 100 MILLIGRAM DAILY;
     Route: 064
  5. CELLCEPT [Suspect]
     Active Substance: MYCOPHENOLATE MOFETIL\MYCOPHENOLATE MOFETIL HYDROCHLORIDE
     Indication: SYSTEMIC LUPUS ERYTHEMATOSUS
     Route: 064

REACTIONS (2)
  - Foetal exposure during pregnancy [Unknown]
  - Renal aplasia [Fatal]
